FAERS Safety Report 14704582 (Version 2)
Quarter: 2018Q3

REPORT INFORMATION
  Report Type: Spontaneous
  Country: JP (occurrence: JP)
  Receive Date: 20180402
  Receipt Date: 20180731
  Transmission Date: 20181010
  Serious: Yes (Other)
  Sender: FDA-Public Use
  Company Number: JP-ASTELLAS-2018JP006079AA

PATIENT
  Age: 68 Year
  Sex: Female

DRUGS (16)
  1. MELPHALAN. [Concomitant]
     Active Substance: MELPHALAN
     Indication: PREMEDICATION
     Dosage: UNK UNK, UNKNOWN FREQ.
     Route: 065
  2. MYCOPHENOLATE MOFETIL. [Concomitant]
     Active Substance: MYCOPHENOLATE MOFETIL
     Indication: PROPHYLAXIS AGAINST GRAFT VERSUS HOST DISEASE
     Dosage: UNK UNK, UNKNOWN FREQ.
     Route: 065
  3. VINCRISTINE [Concomitant]
     Active Substance: VINCRISTINE
     Indication: CHEMOTHERAPY
     Dosage: UNK UNK, UNKNOWN FREQ.
     Route: 065
  4. RANIMUSTINE [Concomitant]
     Active Substance: RANIMUSTINE
     Indication: CHEMOTHERAPY
     Dosage: UNK UNK, UNKNOWN FREQ.
     Route: 065
  5. VINDESINE [Concomitant]
     Active Substance: VINDESINE
     Indication: CHEMOTHERAPY
     Dosage: UNK UNK, UNKNOWN FREQ.
     Route: 065
  6. CYTARABINE. [Concomitant]
     Active Substance: CYTARABINE
     Indication: CHEMOTHERAPY
     Dosage: UNK UNK, UNKNOWN FREQ.
     Route: 065
  7. CYCLOPHOSPHAMIDE. [Concomitant]
     Active Substance: CYCLOPHOSPHAMIDE
     Indication: CHEMOTHERAPY
     Dosage: UNK UNK, UNKNOWN FREQ.
     Route: 065
  8. DOXORUBICIN [Concomitant]
     Active Substance: DOXORUBICIN
     Indication: CHEMOTHERAPY
     Dosage: UNK UNK, UNKNOWN FREQ.
     Route: 065
  9. PREDNISOLONE. [Concomitant]
     Active Substance: PREDNISOLONE
     Indication: CHEMOTHERAPY
     Dosage: UNK UNK, UNKNOWN FREQ.
     Route: 065
  10. METHOTREXATE. [Concomitant]
     Active Substance: METHOTREXATE
     Indication: CHEMOTHERAPY
     Dosage: UNK UNK, UNKNOWN FREQ.
     Route: 065
  11. PROGRAF [Suspect]
     Active Substance: TACROLIMUS\TACROLIMUS ANHYDROUS
     Indication: PROPHYLAXIS AGAINST GRAFT VERSUS HOST DISEASE
     Dosage: UNK UNK, UNKNOWN FREQ.
     Route: 065
  12. ETOPOSIDE. [Concomitant]
     Active Substance: ETOPOSIDE
     Indication: CHEMOTHERAPY
     Dosage: UNK UNK, UNKNOWN FREQ.
     Route: 065
  13. FLUDARA [Concomitant]
     Active Substance: FLUDARABINE PHOSPHATE
     Indication: PREMEDICATION
     Dosage: UNK UNK, UNKNOWN FREQ.
     Route: 065
  14. CARBOPLATIN. [Concomitant]
     Active Substance: CARBOPLATIN
     Indication: CHEMOTHERAPY
     Dosage: UNK UNK, UNKNOWN FREQ.
     Route: 065
  15. PREDNISOLONE. [Concomitant]
     Active Substance: PREDNISOLONE
     Indication: IMMUNISATION REACTION
     Dosage: UNK UNK, UNKNOWN FREQ.
     Route: 065
  16. PREDNISOLONE. [Concomitant]
     Active Substance: PREDNISOLONE
     Dosage: TAPERED
     Route: 065

REACTIONS (3)
  - Human herpesvirus 6 infection [Recovering/Resolving]
  - Meningitis noninfective [Recovering/Resolving]
  - Encephalopathy [Recovering/Resolving]
